FAERS Safety Report 10917157 (Version 3)
Quarter: 2015Q4

REPORT INFORMATION
  Report Type: Spontaneous
  Country: CA (occurrence: CA)
  Receive Date: 20150316
  Receipt Date: 20151015
  Transmission Date: 20160304
  Serious: Yes (Other)
  Sender: FDA-Public Use
  Company Number: CA-PFIZER INC-2014230701

PATIENT
  Age: 65 Year
  Sex: Male

DRUGS (5)
  1. CELEBREX [Suspect]
     Active Substance: CELECOXIB
     Dosage: UNK
  2. NAPROSYN [Suspect]
     Active Substance: NAPROXEN
     Dosage: UNK
  3. XELJANZ [Suspect]
     Active Substance: TOFACITINIB CITRATE
     Indication: RHEUMATOID ARTHRITIS
     Dosage: 5 MG, 2X/DAY
     Route: 048
     Dates: start: 20140723
  4. ARTHROTEC [Concomitant]
     Active Substance: DICLOFENAC SODIUM\MISOPROSTOL
     Indication: ARTHRALGIA
     Dosage: UNK, AS NEEDED
  5. LEFLUNOMIDE. [Concomitant]
     Active Substance: LEFLUNOMIDE
     Dosage: UNK

REACTIONS (26)
  - Hernia [Unknown]
  - Anxiety [Not Recovered/Not Resolved]
  - Fatigue [Not Recovered/Not Resolved]
  - Musculoskeletal pain [Recovered/Resolved]
  - Neuropathy peripheral [Unknown]
  - Drug ineffective [Unknown]
  - Nervousness [Not Recovered/Not Resolved]
  - Arthralgia [Recovered/Resolved]
  - Nausea [Recovered/Resolved]
  - Asthenia [Not Recovered/Not Resolved]
  - Rheumatoid arthritis [Recovering/Resolving]
  - Condition aggravated [Recovering/Resolving]
  - Depression [Not Recovered/Not Resolved]
  - Pain in extremity [Recovered/Resolved]
  - Activities of daily living impaired [Recovering/Resolving]
  - Abdominal pain upper [Unknown]
  - Neck pain [Recovering/Resolving]
  - Malaise [Not Recovered/Not Resolved]
  - Dry mouth [Not Recovered/Not Resolved]
  - Erythema [Recovered/Resolved]
  - Swelling [Recovered/Resolved]
  - Myocardial infarction [Unknown]
  - Tenderness [Recovered/Resolved]
  - Back pain [Recovering/Resolving]
  - Joint swelling [Recovering/Resolving]
  - Local swelling [Recovering/Resolving]

NARRATIVE: CASE EVENT DATE: 201408
